FAERS Safety Report 8817865 (Version 2)
Quarter: 2012Q4

REPORT INFORMATION
  Report Type: 
  Country: US (occurrence: US)
  Receive Date: 20121004
  Receipt Date: 20121031
  Transmission Date: 20130627
  Serious: Yes (Other)
  Sender: FDA-Public Use
  Company Number: US-ROCHE-1043069

PATIENT
  Age: 43 None
  Sex: Female
  Weight: 65.83 kg

DRUGS (4)
  1. ACCUTANE [Suspect]
     Indication: ACNE
     Route: 065
     Dates: start: 1988, end: 1992
  2. ACCUTANE [Suspect]
     Route: 065
     Dates: start: 1995
  3. ACCUTANE [Suspect]
     Route: 065
     Dates: start: 1997, end: 199709
  4. ZANTAC [Concomitant]
     Indication: DYSPEPSIA
     Route: 065

REACTIONS (17)
  - Crohn^s disease [Unknown]
  - Panic attack [Unknown]
  - Depression [Unknown]
  - Inflammatory bowel disease [Unknown]
  - Intestinal obstruction [Unknown]
  - Irritable bowel syndrome [Unknown]
  - Epistaxis [Unknown]
  - Chapped lips [Unknown]
  - Dry skin [Unknown]
  - Skin exfoliation [Unknown]
  - Pain in extremity [Unknown]
  - Skin fissures [Unknown]
  - Gamma-glutamyltransferase increased [Unknown]
  - Alanine aminotransferase increased [Unknown]
  - Dry eye [Unknown]
  - Eye pruritus [Unknown]
  - Myalgia [Unknown]
